FAERS Safety Report 4456192-1 (Version None)
Quarter: 2004Q3

REPORT INFORMATION
  Report Type: 
  Country: None (occurrence: None)
  Receive Date: 20040920
  Receipt Date: 20040915
  Transmission Date: 20050211
  Serious: Yes (Hospitalization)
  Sender: FDA-Public Use
  Company Number: 200412649GDS

PATIENT
  Age: 59 Year
  Sex: Male
  Weight: 58 kg

DRUGS (6)
  1. ASPIRIN [Suspect]
     Indication: CEREBRAL INFARCTION
     Dosage: 100 MG, TOTAL DAILY, ORAL
     Route: 048
     Dates: start: 20020101, end: 20031101
  2. VOLTAREN [Suspect]
     Indication: ABDOMINAL PAIN
     Dosage: 75 MG, TOTAL DAILY, ORAL
     Route: 048
     Dates: start: 20030801, end: 20031201
  3. PERIACTIN [Concomitant]
  4. PARIET [Concomitant]
  5. NAUZELIN [Concomitant]
  6. CEREKINON [Concomitant]

REACTIONS (6)
  - ABDOMINAL ADHESIONS [None]
  - ILEAL STENOSIS [None]
  - ILEAL ULCER [None]
  - ILEUS [None]
  - INTESTINAL DILATATION [None]
  - JEJUNAL PERFORATION [None]
